FAERS Safety Report 5249301-8 (Version None)
Quarter: 2007Q1

REPORT INFORMATION
  Report Type: 
  Country: None (occurrence: None)
  Receive Date: 20070223
  Receipt Date: 20070216
  Transmission Date: 20070707
  Serious: Yes (Other)
  Sender: FDA-Public Use
  Company Number: 30952

PATIENT
  Age: 75 Year
  Sex: Male

DRUGS (4)
  1. ALDARA [Suspect]
     Indication: BASAL CELL CARCINOMA
     Dosage: 0.5 DF, 5 TIMES WEEKLY (0.5 DOSAGE FORMS, 5 IN 1 WEEK(S))
     Route: 061
     Dates: start: 20070115, end: 20070216
  2. XATRAL LP (ALUFUZOSIN HYDROCHLORIDE) [Concomitant]
  3. PREDNISONE [Concomitant]
  4. METHOTREXATE [Concomitant]

REACTIONS (7)
  - APPLICATION SITE ERYTHEMA [None]
  - APPLICATION SITE PRURITUS [None]
  - C-REACTIVE PROTEIN INCREASED [None]
  - FATIGUE [None]
  - INFLUENZA LIKE ILLNESS [None]
  - MYALGIA [None]
  - RED BLOOD CELL SEDIMENTATION RATE INCREASED [None]
